FAERS Safety Report 4433310-2 (Version None)
Quarter: 2004Q3

REPORT INFORMATION
  Report Type: 
  Country: None (occurrence: None)
  Receive Date: 20040818
  Receipt Date: 20040422
  Transmission Date: 20050211
  Serious: Yes (Other)
  Sender: FDA-Public Use
  Company Number: 601237

PATIENT
  Age: 35 Month
  Sex: Male
  Weight: 16 kg

DRUGS (2)
  1. FEIBA VH IMMUNO [Suspect]
     Indication: FACTOR VIII DEFICIENCY
     Dosage: 98 IU/KG; BIW; INTRAVENOUS
     Route: 042
     Dates: start: 20000925, end: 20000926
  2. FEIBA [Suspect]

REACTIONS (5)
  - BRONCHOSPASM [None]
  - COUGH [None]
  - FACE OEDEMA [None]
  - PRURITUS [None]
  - RASH [None]
